FAERS Safety Report 11649779 (Version 1)
Quarter: 2015Q4

REPORT INFORMATION
  Report Type: Spontaneous
  Country: RW (occurrence: RW)
  Receive Date: 20151021
  Receipt Date: 20151021
  Transmission Date: 20160304
  Serious: Yes (Other)
  Sender: FDA-Public Use
  Company Number: RW-IPCA LABORATORIES LIMITED-IPC201510-000679

PATIENT
  Age: 51 Year
  Sex: Male

DRUGS (5)
  1. SPIRONOLACTONE. [Suspect]
     Active Substance: SPIRONOLACTONE
  2. FUROSEMIDE. [Suspect]
     Active Substance: FUROSEMIDE
  3. CARVEDILOL. [Suspect]
     Active Substance: CARVEDILOL
  4. LOSARTAN. [Suspect]
     Active Substance: LOSARTAN
  5. HYDROCHLOROTHIAZIDE. [Suspect]
     Active Substance: HYDROCHLOROTHIAZIDE

REACTIONS (3)
  - Acute kidney injury [Unknown]
  - Gouty arthritis [Unknown]
  - Hyperkalaemia [Unknown]
